FAERS Safety Report 25929625 (Version 1)
Quarter: 2025Q4

REPORT INFORMATION
  Report Type: Spontaneous
  Country: US (occurrence: None)
  Receive Date: 20251015
  Receipt Date: 20251015
  Transmission Date: 20260117
  Serious: Yes (Other)
  Sender: FDA-CTU
  Company Number: None

PATIENT
  Age: 61 Year
  Sex: Female

DRUGS (1)
  1. TYMLOS [Suspect]
     Active Substance: ABALOPARATIDE
     Dosage: OTHER STRENGTH : 3120MCG/1.56ML;?FREQUENCY : DAILY;?
     Route: 058

REACTIONS (3)
  - Off label use [None]
  - Wrong technique in product usage process [None]
  - Product communication issue [None]
